FAERS Safety Report 10708686 (Version 1)
Quarter: 2015Q1

REPORT INFORMATION
  Report Type: Spontaneous
  Country: US (occurrence: US)
  Receive Date: 20150113
  Receipt Date: 20150113
  Transmission Date: 20150721
  Serious: Yes (Other)
  Sender: FDA-Public Use
  Company Number: US-BIOMARINAP-US-2014-104732

PATIENT
  Age: 9 Year
  Sex: Male
  Weight: 35 kg

DRUGS (4)
  1. BENADRYL [Concomitant]
     Active Substance: DIPHENHYDRAMINE HYDROCHLORIDE
     Indication: HYPERSENSITIVITY
  2. MOTRIN [Concomitant]
     Active Substance: IBUPROFEN
     Indication: HYPERSENSITIVITY
  3. ALDURAZYME [Suspect]
     Active Substance: LARONIDASE
     Indication: MUCOPOLYSACCHARIDOSIS
     Dosage: 17.4 MG, QW
     Route: 042
     Dates: start: 20100111
  4. TYLENOL [Concomitant]
     Active Substance: ACETAMINOPHEN
     Indication: PYREXIA

REACTIONS (7)
  - Viral infection [Unknown]
  - Headache [Recovered/Resolved]
  - Lymphocyte percentage decreased [Unknown]
  - Eye pain [Recovered/Resolved]
  - Drug dose omission [Unknown]
  - Enterobacter infection [Recovered/Resolved]
  - Sinusitis [Unknown]

NARRATIVE: CASE EVENT DATE: 20141105
